FAERS Safety Report 9408912 (Version 1)
Quarter: 2013Q3

REPORT INFORMATION
  Report Type: Spontaneous
  Country: FR (occurrence: FR)
  Receive Date: 20130719
  Receipt Date: 20130719
  Transmission Date: 20140515
  Serious: Yes (Hospitalization)
  Sender: FDA-Public Use
  Company Number: FR-ROCHE-1249335

PATIENT
  Age: 25 Year
  Sex: Male

DRUGS (2)
  1. VALIUM [Suspect]
     Indication: ANXIETY
     Dosage: SINGLE DOSE
     Route: 048
  2. SKENAN [Suspect]
     Indication: ANXIETY
     Route: 040

REACTIONS (8)
  - Coma [Recovered/Resolved]
  - Renal failure acute [Recovered/Resolved]
  - Rhabdomyolysis [Recovered/Resolved]
  - Septic shock [Recovered/Resolved]
  - Wound [Recovering/Resolving]
  - Phlebitis [Recovering/Resolving]
  - Intentional drug misuse [Unknown]
  - Pneumonia aspiration [Recovered/Resolved]
